FAERS Safety Report 11181260 (Version 1)
Quarter: 2015Q2

REPORT INFORMATION
  Report Type: Spontaneous
  Country: FR (occurrence: FR)
  Receive Date: 20150611
  Receipt Date: 20150611
  Transmission Date: 20150821
  Serious: Yes (Other)
  Sender: FDA-Public Use
  Company Number: FR-FRESENIUS KABI-FK201502573

PATIENT
  Age: 81 Year
  Sex: Female

DRUGS (3)
  1. ROPIVACAINE FRESENIUS KABI (NOT SPECIFIED) (ROPIVACAINE HYDROCHLORIDE) (ROPIVACAINE HYDROCHLORIDE) [Suspect]
     Active Substance: ROPIVACAINE HYDROCHLORIDE
     Route: 053
     Dates: start: 20131213
  2. ROPIVACAINE FRESENIUS KABI (NOT SPECIFIED) (ROPIVACAINE HYDROCHLORIDE) (ROPIVACAINE HYDROCHLORIDE) [Suspect]
     Active Substance: ROPIVACAINE HYDROCHLORIDE
     Indication: GENERAL ANAESTHESIA
     Route: 053
     Dates: start: 20131213
  3. HYPNOVEL [Concomitant]
     Active Substance: MIDAZOLAM\MIDAZOLAM HYDROCHLORIDE
     Indication: SEDATION

REACTIONS (5)
  - Tachycardia [Recovered/Resolved]
  - Tongue biting [Recovered/Resolved]
  - Drug level above therapeutic [Recovered/Resolved]
  - Hypotension [Recovered/Resolved]
  - Seizure [Recovered/Resolved]

NARRATIVE: CASE EVENT DATE: 20131213
